FAERS Safety Report 6830860-6 (Version None)
Quarter: 2010Q3

REPORT INFORMATION
  Report Type: 
  Country: None (occurrence: None)
  Receive Date: 20100712
  Receipt Date: 20100705
  Transmission Date: 20110219
  Serious: Yes (Hospitalization)
  Sender: FDA-Public Use
  Company Number: FR-ASTRAZENECA-2010SE31214

PATIENT
  Age: 52 Year
  Sex: Male

DRUGS (8)
  1. ATACAND [Suspect]
     Route: 048
     Dates: start: 20100415, end: 20100526
  2. PREVISCAN [Suspect]
     Route: 048
     Dates: start: 20100330, end: 20100526
  3. NEXIUM [Concomitant]
     Dates: start: 20100401
  4. RAMIPRIL [Concomitant]
     Route: 048
     Dates: start: 20100401
  5. MUCOMYST [Concomitant]
     Dates: start: 20100401
  6. LASIX [Concomitant]
     Dates: start: 20100401
  7. CALCIPARINE [Concomitant]
     Dates: start: 20100401
  8. SIMVASTATIN [Concomitant]
     Dates: start: 20100401

REACTIONS (1)
  - CYTOLYTIC HEPATITIS [None]
